FAERS Safety Report 10708150 (Version 2)
Quarter: 2015Q1

REPORT INFORMATION
  Report Type: Spontaneous
  Country: DZ (occurrence: DZ)
  Receive Date: 20150113
  Receipt Date: 20150116
  Transmission Date: 20150721
  Serious: Yes (Hospitalization)
  Sender: FDA-Public Use
  Company Number: DZ-SA-2015SA002855

PATIENT
  Age: 57 Year
  Sex: Male
  Weight: 52 kg

DRUGS (8)
  1. TAXOTERE [Suspect]
     Active Substance: DOCETAXEL
     Indication: ADENOCARCINOMA GASTRIC
     Dosage: STRENGTH  : 80 MG/20 MG?80 MG (3F946A)?20 MG (3F125A)
     Route: 042
     Dates: start: 20141223, end: 20141223
  2. SOLU-MEDROL [Concomitant]
     Active Substance: METHYLPREDNISOLONE SODIUM SUCCINATE
     Indication: SKIN REACTION
  3. TAXOTERE [Suspect]
     Active Substance: DOCETAXEL
     Indication: ADENOCARCINOMA GASTRIC
     Dosage: STRENGTH  : 80 MG/20 MG?80 MG (3F946A)?20 MG (3F125A)
     Route: 042
     Dates: start: 20141223, end: 20141223
  4. XELODA [Suspect]
     Active Substance: CAPECITABINE
     Indication: ADENOCARCINOMA GASTRIC
     Route: 048
     Dates: start: 20141223
  5. CEFALEXIN [Concomitant]
     Active Substance: CEPHALEXIN
     Indication: ANTIBIOTIC THERAPY
  6. CARBOPLATIN. [Suspect]
     Active Substance: CARBOPLATIN
     Indication: ADENOCARCINOMA GASTRIC
     Route: 042
     Dates: start: 20141223, end: 20141223
  7. PRO-DAFALGAN [Concomitant]
     Indication: PYREXIA
  8. METRONIDAZOL [Concomitant]
     Active Substance: METRONIDAZOLE
     Indication: ANTIBIOTIC THERAPY

REACTIONS (5)
  - Diarrhoea [Unknown]
  - Leukopenia [Unknown]
  - Rash [Unknown]
  - Pruritus [Unknown]
  - Febrile neutropenia [Unknown]

NARRATIVE: CASE EVENT DATE: 20141230
